FAERS Safety Report 5593921-8 (Version None)
Quarter: 2007Q4

REPORT INFORMATION
  Report Type: 
  Country: None (occurrence: None)
  Receive Date: 20071218
  Receipt Date: 20070320
  Transmission Date: 20080405
  Serious: Yes (Other)
  Sender: FDA-Public Use
  Company Number: 2007022230

PATIENT
  Age: 40 Year
  Sex: Female
  Weight: 158.8 kg

DRUGS (1)
  1. BEXTRA [Suspect]
     Indication: JOINT INJURY
     Dosage: 10 MG (10 MG, 1 IN 1 D)
     Dates: start: 20030401, end: 20050401

REACTIONS (3)
  - ANXIETY [None]
  - DEEP VEIN THROMBOSIS [None]
  - EMBOLISM [None]
